FAERS Safety Report 12675032 (Version 2)
Quarter: 2017Q1

REPORT INFORMATION
  Report Type: Spontaneous
  Country: FR (occurrence: FR)
  Receive Date: 20160822
  Receipt Date: 20170217
  Transmission Date: 20170428
  Serious: Yes (Congenital Anomaly, Other)
  Sender: FDA-Public Use
  Company Number: FR-ABBVIE-16P-056-1706804-00

PATIENT
  Sex: Male

DRUGS (1)
  1. DEPAKINE [Suspect]
     Active Substance: VALPROATE SODIUM
     Indication: MATERNAL EXPOSURE TIMING UNSPECIFIED
     Route: 064

REACTIONS (10)
  - Abnormal behaviour [Unknown]
  - Intellectual disability [Not Recovered/Not Resolved]
  - Tooth disorder [Unknown]
  - Nasal disorder [Unknown]
  - Motor developmental delay [Not Recovered/Not Resolved]
  - Adverse event [Unknown]
  - Congenital anomaly [Unknown]
  - Pharyngeal disorder [Unknown]
  - Ear disorder [Unknown]
  - Foetal exposure during pregnancy [Unknown]
